FAERS Safety Report 4275183-7 (Version None)
Quarter: 2004Q1

REPORT INFORMATION
  Report Type: 
  Country: None (occurrence: None)
  Receive Date: 20040116
  Receipt Date: 20040112
  Transmission Date: 20041129
  Serious: Yes (Hospitalization)
  Sender: FDA-Public Use
  Company Number: 2004CG00068

PATIENT
  Age: 63 Year
  Sex: Male

DRUGS (4)
  1. IRESSA [Suspect]
     Dosage: 250 MG DAILY PO
     Dates: start: 20030505, end: 20030720
  2. DURAGESIC [Suspect]
  3. ACTIISKENAN [Suspect]
  4. DI-ANTALVIC [Suspect]

REACTIONS (7)
  - ABDOMINAL RIGIDITY [None]
  - ACNE [None]
  - DIARRHOEA [None]
  - DISEASE PROGRESSION [None]
  - DRY SKIN [None]
  - PRURITUS [None]
  - VOMITING [None]
